FAERS Safety Report 5022528-6 (Version None)
Quarter: 2006Q2

REPORT INFORMATION
  Report Type: 
  Country: None (occurrence: None)
  Receive Date: 20060605
  Receipt Date: 20060523
  Transmission Date: 20061013
  Serious: Yes (Hospitalization)
  Sender: FDA-Public Use
  Company Number: 2006060653

PATIENT
  Age: 66 Year
  Sex: Male

DRUGS (8)
  1. SUTENT [Suspect]
     Indication: RENAL CANCER METASTATIC
     Dosage: 50 MG (50 MG, 4 WEEKS INTERVAL  2 WEEKS), ORAL
     Route: 048
     Dates: start: 20060419, end: 20060507
  2. SUTENT [Suspect]
     Indication: RENAL CANCER METASTATIC
     Dosage: 50 MG (50 MG, 4 WEEKS INTERVAL  2 WEEKS), ORAL
     Route: 048
     Dates: start: 20060511, end: 20060517
  3. COVERSYL (PERINDOPRIL) [Concomitant]
  4. AMLODIPINE [Concomitant]
  5. KARDEGIC (ACETYLSALICYLATE LYSINE) [Concomitant]
  6. TENORMIN [Concomitant]
  7. DIAMICRON (GLICLAZIDE) [Concomitant]
  8. GLUCOPHAGE [Concomitant]

REACTIONS (5)
  - ASTHENIA [None]
  - CHILLS [None]
  - CONFUSIONAL STATE [None]
  - NAUSEA [None]
  - PYREXIA [None]
